FAERS Safety Report 7399135-3 (Version None)
Quarter: 2011Q1

REPORT INFORMATION
  Report Type: 
  Country: None (occurrence: None)
  Receive Date: 20110328
  Receipt Date: 20110316
  Transmission Date: 20110831
  Serious: Yes (Life-Threatening)
  Sender: FDA-Public Use
  Company Number: 029314

PATIENT
  Sex: Female

DRUGS (6)
  1. ALFAROL [Concomitant]
  2. XYZAL [Suspect]
     Indication: RHINITIS ALLERGIC
     Dosage: 5 MG QD ORAL
     Route: 048
     Dates: start: 20110307, end: 20110307
  3. BENET [Concomitant]
  4. PREDONINE [Concomitant]
  5. THYRADIN S [Concomitant]
  6. HEBESSER R [Concomitant]

REACTIONS (6)
  - OROPHARYNGEAL DISCOMFORT [None]
  - CYANOSIS [None]
  - TYPE I HYPERSENSITIVITY [None]
  - SHOCK [None]
  - DYSPNOEA [None]
  - ASTHMA [None]
